FAERS Safety Report 13103159 (Version 1)
Quarter: 2017Q1

REPORT INFORMATION
  Report Type: Spontaneous
  Country: US (occurrence: US)
  Receive Date: 20170110
  Receipt Date: 20170110
  Transmission Date: 20170428
  Serious: Yes (Hospitalization, Other)
  Sender: FDA-Public Use
  Company Number: US-BAUSCH-BL-2017-000510

PATIENT
  Age: 9 Year
  Sex: Male

DRUGS (5)
  1. CLINDAMYCIN. [Suspect]
     Active Substance: CLINDAMYCIN
     Indication: CELLULITIS
     Dosage: 4 DOSES OF CLINDAMYCIN AS AN INPATIENT (5 DOSES TOTAL INCLUDING THE OUTPATIENT DOSE).
     Route: 065
  2. VANCOMYCIN [Concomitant]
     Active Substance: VANCOMYCIN
     Indication: STEVENS-JOHNSON SYNDROME
     Route: 065
  3. LINEZOLID. [Concomitant]
     Active Substance: LINEZOLID
     Indication: ANTIBIOTIC THERAPY
  4. DOXYCYCLINE. [Concomitant]
     Active Substance: DOXYCYCLINE
     Indication: STEVENS-JOHNSON SYNDROME
     Route: 048
  5. DOXYCYCLINE. [Concomitant]
     Active Substance: DOXYCYCLINE
     Indication: INFECTION

REACTIONS (8)
  - Anaemia [Recovering/Resolving]
  - Dyspnoea [Unknown]
  - Nausea [Unknown]
  - Wheezing [Unknown]
  - Acute generalised exanthematous pustulosis [Unknown]
  - Hypoalbuminaemia [Recovering/Resolving]
  - Hypotension [Recovering/Resolving]
  - Myalgia [Unknown]
